FAERS Safety Report 7730249-1 (Version None)
Quarter: 2011Q3

REPORT INFORMATION
  Report Type: 
  Country: None (occurrence: None)
  Receive Date: 20110906
  Receipt Date: 20110902
  Transmission Date: 20111222
  Serious: Yes (Death)
  Sender: FDA-Public Use
  Company Number: PHEH2011US03200

PATIENT
  Sex: Male

DRUGS (8)
  1. FISH OIL [Concomitant]
     Dosage: UNK UKN, UNK
  2. AFINITOR [Suspect]
     Dosage: 1 DF (5 MG), EVERY DAY
     Route: 048
  3. VITAMIN E [Concomitant]
  4. METHADONE HCL [Concomitant]
     Dosage: UNK UKN, UNK
  5. VICODIN [Concomitant]
     Dosage: UNK UKN, UNK
  6. VITAMIN D [Concomitant]
     Dosage: UNK UKN, UNK
  7. HYDROCHLOROTHIAZIDE [Concomitant]
     Dosage: UNK UKN, UNK
  8. VITAMIN B-12 [Concomitant]

REACTIONS (1)
  - DEATH [None]
